FAERS Safety Report 7341690-3 (Version None)
Quarter: 2011Q1

REPORT INFORMATION
  Report Type: 
  Country: None (occurrence: None)
  Receive Date: 20110309
  Receipt Date: 20110303
  Transmission Date: 20110831
  Serious: Yes (Other)
  Sender: FDA-Public Use
  Company Number: US-PFIZER INC-2011047876

PATIENT
  Sex: Female

DRUGS (2)
  1. LYRICA [Suspect]
     Dosage: 250 MG, DAILY
  2. CYMBALTA [Suspect]
     Dosage: UNK

REACTIONS (6)
  - INSOMNIA [None]
  - CONTUSION [None]
  - DECREASED APPETITE [None]
  - MANIA [None]
  - NIGHT SWEATS [None]
  - FIBROMYALGIA [None]
